FAERS Safety Report 20585105 (Version 1)
Quarter: 2022Q1

REPORT INFORMATION
  Report Type: Other
  Country: US (occurrence: None)
  Receive Date: 20220311
  Receipt Date: 20220311
  Transmission Date: 20220423
  Serious: Yes (Other)
  Sender: FDA-Public Use
  Company Number: US-ROCHE-3039060

PATIENT
  Sex: Female

DRUGS (1)
  1. OCREVUS [Suspect]
     Active Substance: OCRELIZUMAB
     Indication: Relapsing-remitting multiple sclerosis
     Dosage: (PRESCRIBED AS 600 MG TWICE IN A YEAR)?DATE OF TREATMENT: 16/DEC/2021
     Route: 065
     Dates: start: 20181220

REACTIONS (2)
  - Mycobacterium tuberculosis complex test positive [Unknown]
  - Lymphocyte count decreased [Not Recovered/Not Resolved]
